FAERS Safety Report 18972256 (Version 1)
Quarter: 2021Q1

REPORT INFORMATION
  Report Type: Spontaneous
  Country: US (occurrence: US)
  Receive Date: 20210305
  Receipt Date: 20210305
  Transmission Date: 20210420
  Serious: Yes (Other)
  Sender: FDA-Public Use
  Company Number: US-SUN PHARMACEUTICAL INDUSTRIES LTD-2021R1-282026

PATIENT
  Age: 61 Year
  Sex: Female

DRUGS (1)
  1. MORPHINE [Suspect]
     Active Substance: MORPHINE
     Indication: POSTOPERATIVE ANALGESIA
     Dosage: 100 MG
     Route: 065

REACTIONS (3)
  - Medication error [Recovered/Resolved]
  - Overdose [Recovered/Resolved]
  - Unresponsive to stimuli [Recovered/Resolved]
